FAERS Safety Report 14367094 (Version 4)
Quarter: 2018Q3

REPORT INFORMATION
  Report Type: Report from Study
  Country: AR (occurrence: AR)
  Receive Date: 20180109
  Receipt Date: 20180807
  Transmission Date: 20181010
  Serious: Yes (Other)
  Sender: FDA-Public Use
  Company Number: PHHY2017AR192248

PATIENT
  Age: 74 Year
  Sex: Female

DRUGS (4)
  1. VITAMIIN C [Concomitant]
     Active Substance: ASCORBIC ACID
     Indication: PRODUCT USED FOR UNKNOWN INDICATION
     Route: 065
  2. AZARGA [Suspect]
     Active Substance: BRINZOLAMIDE\TIMOLOL MALEATE
     Dosage: 2 GTT, QD
     Route: 047
     Dates: start: 20171215
  3. CORBIS [Concomitant]
     Indication: PRODUCT USED FOR UNKNOWN INDICATION
     Dosage: 1 DF, QD (IN MORNING)
     Route: 065
  4. AZARGA [Suspect]
     Active Substance: BRINZOLAMIDE\TIMOLOL MALEATE
     Indication: GLAUCOMA
     Dosage: 2 GTT, QD
     Route: 047

REACTIONS (9)
  - Memory impairment [Unknown]
  - Ocular discomfort [Recovered/Resolved]
  - Feeling of despair [Unknown]
  - Arrhythmia [Unknown]
  - Eye pain [Recovered/Resolved]
  - Eye allergy [Recovered/Resolved]
  - Vision blurred [Recovering/Resolving]
  - Eye swelling [Recovered/Resolved]
  - Visual impairment [Recovered/Resolved]

NARRATIVE: CASE EVENT DATE: 20171215
